FAERS Safety Report 21801343 (Version 3)
Quarter: 2023Q2

REPORT INFORMATION
  Report Type: Report from Study
  Country: US (occurrence: US)
  Receive Date: 20221230
  Receipt Date: 20230410
  Transmission Date: 20230721
  Serious: Yes (Hospitalization)
  Sender: FDA-Public Use
  Company Number: US-TAKEDA-2022TUS096030

PATIENT
  Age: 67 Year
  Sex: Female

DRUGS (12)
  1. TEDUGLUTIDE [Suspect]
     Active Substance: TEDUGLUTIDE
     Indication: Short-bowel syndrome
     Dosage: 5.5 MILLIGRAM, QD
     Route: 058
     Dates: start: 202211
  2. TEDUGLUTIDE [Suspect]
     Active Substance: TEDUGLUTIDE
     Indication: Short-bowel syndrome
     Dosage: 5.5 MILLIGRAM, QD
     Route: 058
     Dates: start: 202211
  3. TEDUGLUTIDE [Suspect]
     Active Substance: TEDUGLUTIDE
     Indication: Short-bowel syndrome
     Dosage: 5.5 MILLIGRAM, QD
     Route: 058
     Dates: start: 202211
  4. TEDUGLUTIDE [Suspect]
     Active Substance: TEDUGLUTIDE
     Indication: Short-bowel syndrome
     Dosage: 5.5 MILLIGRAM, QD
     Route: 058
     Dates: start: 202211
  5. TEDUGLUTIDE [Suspect]
     Active Substance: TEDUGLUTIDE
     Dosage: 0.55 MILLILITER, QD
     Route: 058
     Dates: start: 20221110
  6. TEDUGLUTIDE [Suspect]
     Active Substance: TEDUGLUTIDE
     Dosage: 0.55 MILLILITER, QD
     Route: 058
     Dates: start: 20221110
  7. TEDUGLUTIDE [Suspect]
     Active Substance: TEDUGLUTIDE
     Dosage: 0.55 MILLILITER, QD
     Route: 058
     Dates: start: 20221110
  8. TEDUGLUTIDE [Suspect]
     Active Substance: TEDUGLUTIDE
     Dosage: 0.55 MILLILITER, QD
     Route: 058
     Dates: start: 20221110
  9. TEDUGLUTIDE [Suspect]
     Active Substance: TEDUGLUTIDE
     Dosage: 5.5 MILLIGRAM, QD
     Route: 058
     Dates: start: 20221111
  10. TEDUGLUTIDE [Suspect]
     Active Substance: TEDUGLUTIDE
     Dosage: 5.5 MILLIGRAM, QD
     Route: 058
     Dates: start: 20221111
  11. TEDUGLUTIDE [Suspect]
     Active Substance: TEDUGLUTIDE
     Dosage: 5.5 MILLIGRAM, QD
     Route: 058
     Dates: start: 20221111
  12. TEDUGLUTIDE [Suspect]
     Active Substance: TEDUGLUTIDE
     Dosage: 5.5 MILLIGRAM, QD
     Route: 058
     Dates: start: 20221111

REACTIONS (6)
  - Abscess [Unknown]
  - Renal disorder [Unknown]
  - Blood creatinine increased [Unknown]
  - Peripheral swelling [Unknown]
  - Urine output decreased [Unknown]
  - Product dose omission issue [Unknown]

NARRATIVE: CASE EVENT DATE: 20221231
